FAERS Safety Report 10340866 (Version 1)
Quarter: 2014Q3

REPORT INFORMATION
  Report Type: Spontaneous
  Country: FR (occurrence: FR)
  Receive Date: 20140724
  Receipt Date: 20140724
  Transmission Date: 20150326
  Serious: Yes (Death)
  Sender: FDA-Public Use
  Company Number: FR-B.I. PHARMACEUTICALS,INC./RIDGEFIELD-2014-BI-33902FF

PATIENT
  Age: 77 Year
  Sex: Male

DRUGS (10)
  1. NATISPRAY [Concomitant]
     Active Substance: NITROGLYCERIN
     Dosage: FORMULATION: SOLUTION FOR ORAL SPRAY 0.30MG
     Route: 055
  2. GALVUS [Concomitant]
     Active Substance: VILDAGLIPTIN
     Dosage: 50 MG
     Route: 048
  3. PRADAXA [Suspect]
     Active Substance: DABIGATRAN ETEXILATE MESYLATE
     Indication: PRODUCT USED FOR UNKNOWN INDICATION
     Dosage: 300 MG
     Route: 048
     Dates: end: 20140322
  4. LASILIX [Concomitant]
     Active Substance: FUROSEMIDE
     Route: 065
     Dates: start: 20140325
  5. ADENURIC [Concomitant]
     Active Substance: FEBUXOSTAT
     Route: 048
  6. STILNOX [Concomitant]
     Active Substance: ZOLPIDEM TARTRATE
     Dosage: 10 MG
     Route: 048
  7. CORGARD [Concomitant]
     Active Substance: NADOLOL
     Route: 048
  8. LASILIX [Concomitant]
     Active Substance: FUROSEMIDE
     Dosage: 120 MG
     Route: 048
     Dates: end: 20140323
  9. NOVONORM [Concomitant]
     Active Substance: REPAGLINIDE
     Dosage: 8 MG
     Route: 048
  10. METFORMINE [Concomitant]
     Active Substance: METFORMIN HYDROCHLORIDE
     Dosage: 3000 MG
     Route: 048

REACTIONS (1)
  - Subdural haematoma [Fatal]

NARRATIVE: CASE EVENT DATE: 20140322
